FAERS Safety Report 6414824-2 (Version None)
Quarter: 2009Q4

REPORT INFORMATION
  Report Type: 
  Country: None (occurrence: None)
  Receive Date: 20091026
  Receipt Date: 20091026
  Transmission Date: 20100525
  Serious: No
  Sender: FDA-Public Use
  Company Number: None

PATIENT
  Age: 44 Year
  Sex: Female
  Weight: 54.4316 kg

DRUGS (1)
  1. ASTELIN [Suspect]
     Indication: MULTIPLE ALLERGIES
     Dosage: 2 SPRAYS PER NOSTRIL 2 TIME A DAY
     Route: 045
     Dates: start: 20080101, end: 20080430

REACTIONS (7)
  - AMENORRHOEA [None]
  - ARTHRALGIA [None]
  - AUTOIMMUNE DISORDER [None]
  - JOINT SWELLING [None]
  - OEDEMA PERIPHERAL [None]
  - PAIN IN EXTREMITY [None]
  - UNEVALUABLE EVENT [None]
